FAERS Safety Report 10371118 (Version 1)
Quarter: 2014Q3

REPORT INFORMATION
  Report Type: Spontaneous
  Country: US (occurrence: None)
  Receive Date: 20140807
  Receipt Date: 20140807
  Transmission Date: 20150326
  Serious: Yes (Disabling, Other)
  Sender: FDA-Public Use
  Company Number: None

PATIENT
  Age: 54 Year
  Sex: Male
  Weight: 109.1 kg

DRUGS (1)
  1. HUMIRA [Suspect]
     Active Substance: ADALIMUMAB
     Indication: RHEUMATOID ARTHRITIS
     Dates: start: 1999, end: 201405

REACTIONS (6)
  - Pain [None]
  - Skin exfoliation [None]
  - Psoriatic arthropathy [None]
  - Erythema [None]
  - Psoriasis [None]
  - Discomfort [None]

NARRATIVE: CASE EVENT DATE: 20140509
